FAERS Safety Report 9695606 (Version 1)
Quarter: 2013Q4

REPORT INFORMATION
  Report Type: Spontaneous
  Country: US (occurrence: None)
  Receive Date: 20131118
  Receipt Date: 20131118
  Transmission Date: 20140711
  Serious: Yes (Hospitalization, Other)
  Sender: FDA-Public Use
  Company Number: None

PATIENT
  Age: 27 Year
  Sex: Female
  Weight: 108.41 kg

DRUGS (2)
  1. NICOTROL [Suspect]
     Indication: SMOKING CESSATION THERAPY
     Dosage: 10MG CARTRIDGE (4-12/DAY)
     Dates: start: 20130701
  2. GLYBURIDE [Concomitant]

REACTIONS (3)
  - Gestational diabetes [None]
  - Exposure during pregnancy [None]
  - Passive smoking [None]
